FAERS Safety Report 15462189 (Version 3)
Quarter: 2025Q4

REPORT INFORMATION
  Report Type: Spontaneous
  Country: EU (occurrence: EU)
  Receive Date: 20181004
  Receipt Date: 20251212
  Transmission Date: 20260118
  Serious: Yes (Hospitalization, Other)
  Sender: AUROBINDO
  Company Number: EU-AUROBINDO-AUR-APL-2018-048134

PATIENT
  Age: 5 Year
  Sex: Male

DRUGS (1)
  1. OLANZAPINE [Suspect]
     Active Substance: OLANZAPINE
     Indication: Product used for unknown indication
     Dosage: UNK
     Route: 065

REACTIONS (7)
  - Drug screen positive [Unknown]
  - Intentional product misuse [Unknown]
  - Vitamin D deficiency [Unknown]
  - Gait disturbance [Recovered/Resolved]
  - Encephalitis [Unknown]
  - Somnolence [Recovered/Resolved]
  - Accidental exposure to product by child [Unknown]
